FAERS Safety Report 23416298 (Version 1)
Quarter: 2024Q1

REPORT INFORMATION
  Report Type: Spontaneous
  Country: GB (occurrence: None)
  Receive Date: 20240117
  Receipt Date: 20240117
  Transmission Date: 20240409
  Serious: Yes (Hospitalization)
  Sender: FDA-Public Use
  Company Number: None

PATIENT
  Sex: 0

DRUGS (1)
  1. CYTOXAN [Suspect]
     Active Substance: CYCLOPHOSPHAMIDE

REACTIONS (7)
  - Alopecia [None]
  - Cystitis [None]
  - Abdominal pain upper [None]
  - Abdominal distension [None]
  - Diarrhoea [None]
  - Renal cyst infection [None]
  - Staphylococcal infection [None]

NARRATIVE: CASE EVENT DATE: 20130101
